FAERS Safety Report 22654792 (Version 1)
Quarter: 2023Q2

REPORT INFORMATION
  Report Type: Spontaneous
  Country: US (occurrence: None)
  Receive Date: 20230628
  Receipt Date: 20230628
  Transmission Date: 20230721
  Serious: Yes (Hospitalization)
  Sender: FDA-Public Use
  Company Number: None

PATIENT
  Sex: Female

DRUGS (1)
  1. MIGLUSTAT [Suspect]
     Active Substance: MIGLUSTAT
     Indication: Gaucher^s disease
     Dosage: 100MG THREE TIMES DAILY ORAL
     Route: 048
     Dates: start: 202302

REACTIONS (2)
  - Gastrointestinal bacterial infection [None]
  - Therapy cessation [None]
